FAERS Safety Report 15718248 (Version 1)
Quarter: 2018Q4

REPORT INFORMATION
  Report Type: Spontaneous
  Country: US (occurrence: US)
  Receive Date: 20181213
  Receipt Date: 20181213
  Transmission Date: 20190205
  Serious: Yes (Hospitalization, Other)
  Sender: FDA-Public Use
  Company Number: US-GLAXOSMITHKLINE-US2018223771

PATIENT
  Age: 29 Year
  Sex: Male

DRUGS (1)
  1. EXCEDRIN EXTRA STRENGTH [Suspect]
     Active Substance: ACETAMINOPHEN\ASPIRIN\CAFFEINE
     Indication: HEADACHE
     Dosage: UNK

REACTIONS (4)
  - Internal haemorrhage [Recovered/Resolved]
  - Gastric ulcer [Recovered/Resolved]
  - Haemorrhage [Recovered/Resolved]
  - Faeces discoloured [Recovered/Resolved]

NARRATIVE: CASE EVENT DATE: 20181117
